FAERS Safety Report 4937526-8 (Version None)
Quarter: 2006Q1

REPORT INFORMATION
  Report Type: 
  Country: None (occurrence: None)
  Receive Date: 20060309
  Receipt Date: 20060222
  Transmission Date: 20060701
  Serious: Yes (Other)
  Sender: FDA-Public Use
  Company Number: DEWYE420822FEB06

PATIENT
  Sex: Female

DRUGS (2)
  1. ENBREL [Suspect]
     Indication: DRUG USE FOR UNKNOWN INDICATION
     Dosage: UNKNOWN
     Route: 058
  2. LANTAREL [Suspect]
     Dosage: UNKNOWN
     Route: 065

REACTIONS (2)
  - ALVEOLITIS [None]
  - PULMONARY FIBROSIS [None]
